FAERS Safety Report 15631806 (Version 3)
Quarter: 2018Q4

REPORT INFORMATION
  Report Type: Spontaneous
  Country: JP (occurrence: JP)
  Receive Date: 20181119
  Receipt Date: 20181228
  Transmission Date: 20190205
  Serious: Yes (Hospitalization, Other)
  Sender: FDA-Public Use
  Company Number: JP-ROCHE-2217227

PATIENT
  Age: 72 Year
  Sex: Male

DRUGS (11)
  1. AVASTIN [Suspect]
     Active Substance: BEVACIZUMAB
     Indication: RECTAL CANCER
     Dosage: DOSAGE IS UNCERTAIN. ?ADMINISTRATION PERIOD: 1 COURSE
     Route: 041
  2. AVASTIN [Suspect]
     Active Substance: BEVACIZUMAB
     Dosage: DOSAGE IS UNCERTAIN. ?ADMINISTRATION PERIOD: 3 COURSE
     Route: 041
  3. OXALIPLATIN. [Concomitant]
     Active Substance: OXALIPLATIN
     Dosage: DOSAGE IS UNCERTAIN. ?ADMINISTRATION PERIOD: 1 COURSE
     Route: 041
  4. LEVOFOLINATE DE CALCIUM [Concomitant]
     Active Substance: LEVOLEUCOVORIN CALCIUM
     Indication: RECTAL CANCER
     Dosage: DOSAGE IS UNCERTAIN. ?ADMINISTRATION PERIOD: 1 COURSE
     Route: 041
  5. GIMERACIL/OTERACIL POTASSIUM/TEGAFUR [Concomitant]
     Active Substance: GIMERACIL\OTERACIL\TEGAFUR
     Indication: RECTAL CANCER
     Dosage: DOSAGE IS UNCERTAIN. ?ADMINISTRATION PERIOD: 1 COURSE
     Route: 048
  6. UFT [Concomitant]
     Active Substance: TEGAFUR\URACIL
     Indication: RECTAL CANCER
     Dosage: DOSAGE IS UNCERTAIN. ?ADMINISTRATION PERIOD: 3 COURSE
     Route: 048
  7. LEVOFOLINATE DE CALCIUM [Concomitant]
     Active Substance: LEVOLEUCOVORIN CALCIUM
     Dosage: DOSAGE IS UNCERTAIN. ?ADMINISTRATION PERIOD: 3 COURSE
     Route: 041
  8. FLUOROURACIL. [Concomitant]
     Active Substance: FLUOROURACIL
     Indication: RECTAL CANCER
     Dosage: DOSAGE IS UNCERTAIN. ?ADMINISTRATION PERIOD: 1 COURSE
     Route: 040
  9. FLUOROURACIL. [Concomitant]
     Active Substance: FLUOROURACIL
     Dosage: DOSAGE IS UNCERTAIN. ?ADMINISTRATION PERIOD: 1 COURSE
     Route: 041
  10. AVASTIN [Suspect]
     Active Substance: BEVACIZUMAB
     Dosage: DOSAGE IS UNCERTAIN. ?ADMINISTRATION PERIOD: 1 COURSE
     Route: 041
  11. OXALIPLATIN. [Concomitant]
     Active Substance: OXALIPLATIN
     Indication: RECTAL CANCER
     Dosage: DOSAGE IS UNCERTAIN. ?ADMINISTRATION PERIOD: 1 COURSE
     Route: 041

REACTIONS (8)
  - Oedema [Unknown]
  - Fournier^s gangrene [Unknown]
  - Metastases to lung [Unknown]
  - Hypoaesthesia [Unknown]
  - Rectal ulcer haemorrhage [Unknown]
  - Inflammation [Unknown]
  - Large intestinal ulcer perforation [Unknown]
  - Pain in extremity [Unknown]
